FAERS Safety Report 15348626 (Version 3)
Quarter: 2018Q4

REPORT INFORMATION
  Report Type: Report from Study
  Country: US (occurrence: US)
  Receive Date: 20180904
  Receipt Date: 20181031
  Transmission Date: 20190204
  Serious: Yes (Hospitalization, Other)
  Sender: FDA-Public Use
  Company Number: US-ASTELLAS-2018US038556

PATIENT
  Age: 34 Year
  Sex: Female

DRUGS (227)
  1. ISAVUCONAZOLE [Suspect]
     Active Substance: ISAVUCONAZOLE
     Route: 048
     Dates: start: 20181004, end: 20181007
  2. ISAVUCONAZOLE [Suspect]
     Active Substance: ISAVUCONAZOLE
     Route: 048
     Dates: start: 20181009, end: 20181010
  3. ISAVUCONAZOLE [Suspect]
     Active Substance: ISAVUCONAZOLE
     Dosage: 372 MG, ONCE
     Route: 048
     Dates: start: 20181013, end: 20181013
  4. CIPROFLOXACIN. [Concomitant]
     Active Substance: CIPROFLOXACIN
     Indication: PRODUCT USED FOR UNKNOWN INDICATION
     Route: 048
     Dates: start: 20180802, end: 20180803
  5. CYCLOSPORINE. [Concomitant]
     Active Substance: CYCLOSPORINE
     Route: 042
     Dates: start: 20180807, end: 20180809
  6. CYCLOSPORINE. [Concomitant]
     Active Substance: CYCLOSPORINE
     Route: 042
     Dates: start: 20180827
  7. CYCLOSPORINE. [Concomitant]
     Active Substance: CYCLOSPORINE
     Route: 065
     Dates: start: 20180925, end: 20180926
  8. CYCLOSPORINE. [Concomitant]
     Active Substance: CYCLOSPORINE
     Route: 042
     Dates: start: 20180926, end: 20180926
  9. DIPHENHYDRAMINE. [Concomitant]
     Active Substance: DIPHENHYDRAMINE
     Indication: PRODUCT USED FOR UNKNOWN INDICATION
     Route: 048
     Dates: start: 20180719, end: 20180808
  10. DIPHENHYDRAMINE. [Concomitant]
     Active Substance: DIPHENHYDRAMINE
     Dosage: 50 MG, EVERY 6 HOURS (AS NEEDED)
     Route: 042
     Dates: start: 20180812, end: 20180818
  11. FUROSEMIDE. [Concomitant]
     Active Substance: FUROSEMIDE
     Indication: PRODUCT USED FOR UNKNOWN INDICATION
     Dosage: 20 MG, OTHER (ONCE)
     Route: 042
     Dates: start: 20180728, end: 20180728
  12. FUROSEMIDE. [Concomitant]
     Active Substance: FUROSEMIDE
     Dosage: 40 MG, OTHER (ONCE)
     Route: 042
     Dates: start: 20180801, end: 20180803
  13. GRANISETRON [Concomitant]
     Active Substance: GRANISETRON
     Indication: PRODUCT USED FOR UNKNOWN INDICATION
     Dosage: 1 MG, EVERY 12 HOURS (AS NEEDED)
     Route: 042
     Dates: start: 20180717, end: 20180807
  14. HYDROCORTISONE. [Concomitant]
     Active Substance: HYDROCORTISONE
     Dosage: 50 MG, EVERY 6 HOURS (AS NEEDED)
     Route: 042
     Dates: start: 20180827
  15. LORAZEPAM. [Concomitant]
     Active Substance: LORAZEPAM
     Dosage: 0.5 MG, OTHER (ONCE)
     Route: 048
     Dates: start: 20180826, end: 20180826
  16. LORAZEPAM. [Concomitant]
     Active Substance: LORAZEPAM
     Dosage: 0.5 MG, TOTAL DOSE
     Route: 042
     Dates: start: 20181017, end: 20181017
  17. MAGNESIUM SULFATE. [Concomitant]
     Active Substance: MAGNESIUM SULFATE
     Dosage: 2 G, OTHER (EVERY 1 HOUR)
     Route: 042
     Dates: start: 20180803, end: 20180803
  18. MAGNESIUM SULFATE. [Concomitant]
     Active Substance: MAGNESIUM SULFATE
     Dosage: 1 G, OTHER (ONCE)
     Route: 042
     Dates: start: 20180811, end: 20180811
  19. MAGNESIUM SULFATE. [Concomitant]
     Active Substance: MAGNESIUM SULFATE
     Dosage: 2 G, OTHER (EVERY 2 HOURS)
     Route: 042
     Dates: start: 20180818, end: 20180818
  20. MAGNESIUM SULFATE. [Concomitant]
     Active Substance: MAGNESIUM SULFATE
     Dosage: 2 G, EVERY 30 MINUTES
     Route: 042
     Dates: start: 20180928, end: 20180928
  21. MAGNESIUM SULFATE. [Concomitant]
     Active Substance: MAGNESIUM SULFATE
     Route: 042
     Dates: start: 20181017, end: 20181017
  22. PENTAMIDINE [Concomitant]
     Active Substance: PENTAMIDINE
     Indication: PRODUCT USED FOR UNKNOWN INDICATION
     Dosage: 300 MG, EVERY 4 WEEKS (NEBULIZER)
     Route: 042
     Dates: start: 20180822, end: 20180822
  23. POTASSIUM CHLORIDE. [Concomitant]
     Active Substance: POTASSIUM CHLORIDE
     Indication: PRODUCT USED FOR UNKNOWN INDICATION
     Dosage: 20 MEQ, OTHER (ONCE)
     Route: 048
     Dates: start: 20180729, end: 20180729
  24. POTASSIUM CHLORIDE. [Concomitant]
     Active Substance: POTASSIUM CHLORIDE
     Route: 042
     Dates: start: 20181013, end: 20181013
  25. PROCHLORPERAZINE. [Concomitant]
     Active Substance: PROCHLORPERAZINE
     Indication: PRODUCT USED FOR UNKNOWN INDICATION
     Dosage: 10 MG, OTHER (ONCE)
     Route: 042
     Dates: start: 20180804, end: 20180804
  26. VANCOMYCIN [Concomitant]
     Active Substance: VANCOMYCIN
     Route: 048
     Dates: start: 20181020, end: 20181020
  27. CYCLOSPORINE. [Concomitant]
     Active Substance: CYCLOSPORINE
     Dosage: 125 MG, TOTAL DOSE
     Route: 048
     Dates: start: 20181009, end: 20181010
  28. LORAZEPAM. [Concomitant]
     Active Substance: LORAZEPAM
     Indication: PRODUCT USED FOR UNKNOWN INDICATION
     Dosage: 0.5 MG, EVERY 6 HOURS
     Route: 048
     Dates: start: 20180927, end: 20180927
  29. ONDANSETRON [Concomitant]
     Active Substance: ONDANSETRON
     Route: 048
     Dates: start: 20181015, end: 20181015
  30. PANTOPRAZOLE [Concomitant]
     Active Substance: PANTOPRAZOLE
     Indication: PRODUCT USED FOR UNKNOWN INDICATION
     Route: 048
     Dates: start: 20181004, end: 20181011
  31. PIPERACILLIN/TAZOBACTAM [Concomitant]
     Active Substance: PIPERACILLIN SODIUM\TAZOBACTAM SODIUM
     Route: 042
     Dates: end: 18001005
  32. BUDESONIDE. [Concomitant]
     Active Substance: BUDESONIDE
     Route: 048
     Dates: start: 20181004, end: 20181011
  33. LOPERAMIDE [Concomitant]
     Active Substance: LOPERAMIDE
     Dosage: 2 MG, OTHER (8 TIMES DAILY)
     Route: 048
     Dates: start: 20181013, end: 20181013
  34. HYDROXYZINE [Concomitant]
     Active Substance: HYDROXYZINE HYDROCHLORIDE
     Route: 042
     Dates: start: 20181007, end: 20181009
  35. ISAVUCONAZOLE [Suspect]
     Active Substance: ISAVUCONAZOLE
     Route: 042
     Dates: start: 20180729, end: 20180814
  36. ISAVUCONAZOLE [Suspect]
     Active Substance: ISAVUCONAZOLE
     Route: 048
     Dates: start: 20180815, end: 20180826
  37. ISAVUCONAZOLE [Suspect]
     Active Substance: ISAVUCONAZOLE
     Route: 048
     Dates: start: 20180921, end: 20180922
  38. ISAVUCONAZOLE [Suspect]
     Active Substance: ISAVUCONAZOLE
     Route: 048
     Dates: start: 20181013, end: 20181014
  39. AQUAPHOR                           /01563901/ [Concomitant]
     Indication: PRODUCT USED FOR UNKNOWN INDICATION
     Dosage: 1 APPLICATION, EVERY 12 HOURS
     Route: 061
     Dates: start: 20180819, end: 20180822
  40. ALUMINUM MAGNESIUM OXIDE [Concomitant]
     Indication: PRODUCT USED FOR UNKNOWN INDICATION
     Dosage: 15 ML, OTHER (EVERY 4 HOURS AS NEEDED)
     Route: 048
     Dates: start: 20180731, end: 20180731
  41. ALUMINUM MAGNESIUM OXIDE [Concomitant]
     Dosage: 15 ML, OTHER (EVERY 4 HOURS AS NEEDED)
     Route: 048
     Dates: start: 20180811, end: 20180811
  42. SIMETHICONE (DIMETHICONE) [Concomitant]
     Active Substance: DIMETHICONE
     Indication: PRODUCT USED FOR UNKNOWN INDICATION
     Dosage: 15 ML, OTHER (EVERY 4 HOURS AS NEEDED)
     Route: 048
     Dates: start: 20180731, end: 20180731
  43. CIPROFLOXACIN. [Concomitant]
     Active Substance: CIPROFLOXACIN
     Route: 042
     Dates: start: 20180718, end: 20180802
  44. CIPROFLOXACIN. [Concomitant]
     Active Substance: CIPROFLOXACIN
     Route: 042
     Dates: start: 20180803, end: 20180811
  45. CYCLOSPORINE. [Concomitant]
     Active Substance: CYCLOSPORINE
     Indication: PRODUCT USED FOR UNKNOWN INDICATION
     Route: 042
     Dates: start: 20180728, end: 20180801
  46. CYCLOSPORINE. [Concomitant]
     Active Substance: CYCLOSPORINE
     Route: 042
     Dates: start: 20180803, end: 20180805
  47. DIPHENHYDRAMINE. [Concomitant]
     Active Substance: DIPHENHYDRAMINE
     Dosage: 50 MG, EVERY 6 HOURS (AS NEEDED)
     Route: 042
     Dates: start: 20180808, end: 20180811
  48. FILGRASTIM [Concomitant]
     Active Substance: FILGRASTIM
     Indication: PRODUCT USED FOR UNKNOWN INDICATION
     Route: 058
     Dates: start: 20180814, end: 20180821
  49. FUROSEMIDE. [Concomitant]
     Active Substance: FUROSEMIDE
     Dosage: 20 MG, OTHER (ONCE)
     Route: 042
     Dates: start: 20180806, end: 20180806
  50. FUROSEMIDE. [Concomitant]
     Active Substance: FUROSEMIDE
     Dosage: 20 MG, OTHER (ONCE)
     Route: 042
     Dates: start: 20180818, end: 20180818
  51. HYDROMORPHONE [Concomitant]
     Active Substance: HYDROMORPHONE
     Indication: PRODUCT USED FOR UNKNOWN INDICATION
     Dosage: 10 MG, UNKNOWN FREQ. (CONTINIOUS)
     Route: 042
     Dates: start: 20180729, end: 20180730
  52. MAGNESIUM SULFATE. [Concomitant]
     Active Substance: MAGNESIUM SULFATE
     Dosage: 1 G, OTHER (EVERY 1 HOUR)
     Route: 042
     Dates: start: 20180728, end: 20180728
  53. MAGNESIUM SULFATE. [Concomitant]
     Active Substance: MAGNESIUM SULFATE
     Dosage: 2 G, OTHER (EVERY 1 HOUR)
     Route: 042
     Dates: start: 20180730, end: 20180730
  54. MAGNESIUM SULFATE. [Concomitant]
     Active Substance: MAGNESIUM SULFATE
     Dosage: 2 G, OTHER (ONCE)
     Route: 042
     Dates: start: 20180731, end: 20180731
  55. MAGNESIUM SULFATE. [Concomitant]
     Active Substance: MAGNESIUM SULFATE
     Dosage: 1 G, OTHER (EVERY 1 HOUR)
     Route: 042
     Dates: start: 20180801, end: 20180801
  56. MAGNESIUM SULFATE. [Concomitant]
     Active Substance: MAGNESIUM SULFATE
     Dosage: 1 G, OTHER (EVERY 1 HOUR)
     Route: 042
     Dates: start: 20180806, end: 20180806
  57. MAGNESIUM SULFATE. [Concomitant]
     Active Substance: MAGNESIUM SULFATE
     Dosage: 2 G, OTHER (ONCE)
     Route: 042
     Dates: start: 20180925, end: 20180925
  58. MAGNESIUM SULFATE. [Concomitant]
     Active Substance: MAGNESIUM SULFATE
     Dosage: 2 G, OTHER (ONCE)
     Route: 042
     Dates: start: 20180926, end: 20180926
  59. MORPHINE SULFATE. [Concomitant]
     Active Substance: MORPHINE SULFATE
     Dosage: 100 MG, UNKNOWN FREQ. (CONTINIOUS)
     Route: 042
     Dates: start: 20180731, end: 20180801
  60. MORPHINE SULFATE. [Concomitant]
     Active Substance: MORPHINE SULFATE
     Dosage: 100 MG, UNKNOWN FREQ. (CONTINIOUS)
     Route: 042
     Dates: start: 20180803, end: 20180804
  61. MYCOPHENOLATE MOFETIL. [Concomitant]
     Active Substance: MYCOPHENOLATE MOFETIL
     Dosage: 1500 MG, THRICE DAILY
     Route: 065
     Dates: start: 20180926, end: 20180926
  62. PANTOPRAZOLE [Concomitant]
     Active Substance: PANTOPRAZOLE
     Indication: PRODUCT USED FOR UNKNOWN INDICATION
     Route: 042
     Dates: start: 20180803, end: 20180806
  63. PANTOPRAZOLE [Concomitant]
     Active Substance: PANTOPRAZOLE
     Route: 042
     Dates: start: 20181020, end: 20181020
  64. PENTAMIDINE [Concomitant]
     Active Substance: PENTAMIDINE
     Route: 042
     Dates: start: 20181015, end: 20181015
  65. TRAMADOL HCL [Concomitant]
     Active Substance: TRAMADOL HYDROCHLORIDE
     Indication: PRODUCT USED FOR UNKNOWN INDICATION
     Route: 048
     Dates: start: 20180806, end: 20180806
  66. TRAMADOL HCL [Concomitant]
     Active Substance: TRAMADOL HYDROCHLORIDE
     Route: 048
     Dates: start: 20180806, end: 20180807
  67. METHYLPREDNISOLONE. [Concomitant]
     Active Substance: METHYLPREDNISOLONE
     Indication: PRODUCT USED FOR UNKNOWN INDICATION
     Route: 065
     Dates: start: 20180925, end: 20180926
  68. NORMAL SALINE [Concomitant]
     Active Substance: SODIUM CHLORIDE
     Route: 042
     Dates: start: 20181020, end: 20181020
  69. ERGOCALCIFEROL. [Concomitant]
     Active Substance: ERGOCALCIFEROL
     Indication: PRODUCT USED FOR UNKNOWN INDICATION
     Route: 048
     Dates: start: 20181004, end: 20181004
  70. HYDROXYZINE [Concomitant]
     Active Substance: HYDROXYZINE HYDROCHLORIDE
     Indication: PRODUCT USED FOR UNKNOWN INDICATION
     Route: 048
     Dates: start: 20181005, end: 20181009
  71. HYDROXYZINE [Concomitant]
     Active Substance: HYDROXYZINE HYDROCHLORIDE
     Route: 048
     Dates: start: 20181009, end: 20181010
  72. ERTAPENEM. [Concomitant]
     Active Substance: ERTAPENEM SODIUM
     Indication: PRODUCT USED FOR UNKNOWN INDICATION
     Route: 042
     Dates: start: 20181011, end: 20181011
  73. ERTAPENEM. [Concomitant]
     Active Substance: ERTAPENEM SODIUM
     Route: 042
     Dates: start: 20181013, end: 20181013
  74. OXYCODONE [Concomitant]
     Active Substance: OXYCODONE
     Indication: PRODUCT USED FOR UNKNOWN INDICATION
     Route: 048
  75. ISAVUCONAZOLE [Suspect]
     Active Substance: ISAVUCONAZOLE
     Route: 042
     Dates: start: 20180827
  76. ISAVUCONAZOLE [Suspect]
     Active Substance: ISAVUCONAZOLE
     Route: 042
     Dates: start: 20181007, end: 20181008
  77. ALUMINUM MAGNESIUM OXIDE [Concomitant]
     Dosage: 15 ML, OTHER (EVERY 4 HOURS AS NEEDED)
     Route: 048
     Dates: start: 20180802, end: 20180802
  78. HYDROMORPHONE [Concomitant]
     Active Substance: HYDROMORPHONE
     Indication: PRODUCT USED FOR UNKNOWN INDICATION
     Dosage: 0.4 MG, OTHER (EVERY 3 HOURS AS NEEDED)
     Route: 042
     Dates: start: 20180729, end: 20180729
  79. CIPROFLOXACIN. [Concomitant]
     Active Substance: CIPROFLOXACIN
     Route: 048
     Dates: start: 20180811, end: 20180812
  80. HYDROCORTISONE. [Concomitant]
     Active Substance: HYDROCORTISONE
     Dosage: 50 MG, OTHER (ONCE)
     Route: 042
     Dates: start: 20180824, end: 20180824
  81. IPRATROPIUM BROMIDE. [Concomitant]
     Active Substance: IPRATROPIUM BROMIDE
     Indication: PRODUCT USED FOR UNKNOWN INDICATION
     Dosage: 2.5 ML, OTHER (ONCE), NEBULIZER
     Route: 065
     Dates: start: 20180808, end: 20180808
  82. LEVALBUTEROL. [Concomitant]
     Active Substance: LEVALBUTEROL
     Indication: PRODUCT USED FOR UNKNOWN INDICATION
     Dosage: 0.63 MG, EVERY 6 HOURS
     Route: 065
     Dates: start: 20180808, end: 20180808
  83. LEVALBUTEROL. [Concomitant]
     Active Substance: LEVALBUTEROL
     Dosage: 0.63 MG, EVERY 6 HOURS
     Route: 065
     Dates: start: 20180816, end: 20180818
  84. LORAZEPAM. [Concomitant]
     Active Substance: LORAZEPAM
     Dosage: 0.5 MG, EVERY 12 HOURS (AS NEEDED)
     Route: 042
     Dates: start: 20180729, end: 20180729
  85. LORAZEPAM. [Concomitant]
     Active Substance: LORAZEPAM
     Dosage: 0.5 MG, EVERY 6 HOURS
     Route: 042
     Dates: start: 20180728, end: 20180810
  86. MAGNESIUM SULFATE. [Concomitant]
     Active Substance: MAGNESIUM SULFATE
     Dosage: 2 G, OTHER (ONCE)
     Route: 042
     Dates: start: 20180814, end: 20180814
  87. MAGNESIUM SULFATE. [Concomitant]
     Active Substance: MAGNESIUM SULFATE
     Dosage: 2 G, OTHER (ONCE)
     Route: 042
     Dates: start: 20180826, end: 20180826
  88. MAGNESIUM [Concomitant]
     Active Substance: MAGNESIUM
     Dosage: 2 DF, OTHER (ONCE)
     Route: 048
     Dates: start: 20180804, end: 20180804
  89. MAGNESIUM [Concomitant]
     Active Substance: MAGNESIUM
     Route: 048
     Dates: start: 20180811, end: 20180811
  90. MAGNESIUM [Concomitant]
     Active Substance: MAGNESIUM
     Dosage: 2 DF, OTHER (ONCE)
     Route: 048
     Dates: start: 20180813, end: 20180813
  91. POTASSIUM CHLORIDE. [Concomitant]
     Active Substance: POTASSIUM CHLORIDE
     Dosage: 20 MEQ, OTHER (EVERY 1 HOURS)
     Route: 042
     Dates: start: 20180805, end: 20180805
  92. POTASSIUM CHLORIDE. [Concomitant]
     Active Substance: POTASSIUM CHLORIDE
     Dosage: 40 MEQ, OTHER (ONCE)
     Route: 042
     Dates: start: 20180807, end: 20180807
  93. POTASSIUM CHLORIDE. [Concomitant]
     Active Substance: POTASSIUM CHLORIDE
     Dosage: 20 MEQ, OTHER (EVERY 1 HOUR)
     Route: 042
     Dates: start: 20180811, end: 20180811
  94. VANCOMYCIN [Concomitant]
     Active Substance: VANCOMYCIN
     Route: 048
     Dates: start: 20181004, end: 20181011
  95. PREDNISONE. [Concomitant]
     Active Substance: PREDNISONE
     Indication: PRODUCT USED FOR UNKNOWN INDICATION
     Route: 048
     Dates: start: 20180927, end: 20180927
  96. PREDNISONE. [Concomitant]
     Active Substance: PREDNISONE
     Route: 048
     Dates: start: 20181004, end: 20181007
  97. ONDANSETRON [Concomitant]
     Active Substance: ONDANSETRON
     Indication: PRODUCT USED FOR UNKNOWN INDICATION
     Route: 048
     Dates: start: 20180929, end: 20180929
  98. LOPERAMIDE [Concomitant]
     Active Substance: LOPERAMIDE
     Indication: PRODUCT USED FOR UNKNOWN INDICATION
     Dosage: 2 MG, OTHER (8 TIMES DAILY)
     Route: 048
     Dates: start: 20181005, end: 20181008
  99. ISAVUCONAZOLE [Suspect]
     Active Substance: ISAVUCONAZOLE
     Route: 048
     Dates: start: 20180923, end: 20180927
  100. ISAVUCONAZOLE [Suspect]
     Active Substance: ISAVUCONAZOLE
     Route: 048
     Dates: start: 20181004, end: 20181007
  101. ACYCLOVIR                          /00587301/ [Concomitant]
     Active Substance: ACYCLOVIR
     Indication: PRODUCT USED FOR UNKNOWN INDICATION
     Route: 042
     Dates: start: 20180803, end: 20180806
  102. ACYCLOVIR                          /00587301/ [Concomitant]
     Active Substance: ACYCLOVIR
     Route: 048
     Dates: start: 20180806, end: 20180826
  103. ACYCLOVIR                          /00587301/ [Concomitant]
     Active Substance: ACYCLOVIR
     Route: 042
     Dates: start: 20180827
  104. SIMETHICONE (DIMETHICONE) [Concomitant]
     Active Substance: DIMETHICONE
     Dosage: 15 ML, OTHER (EVERY 4 HOURS AS NEEDED)
     Route: 048
     Dates: start: 20180802, end: 20180802
  105. VITAMIN D2 [Concomitant]
     Active Substance: ERGOCALCIFEROL
     Indication: PRODUCT USED FOR UNKNOWN INDICATION
     Dosage: 50000 IU (1.25 MG), ONCE WEEKLY
     Route: 048
     Dates: start: 20180713
  106. FOLIC ACID. [Concomitant]
     Active Substance: FOLIC ACID
     Route: 048
     Dates: start: 20180812
  107. FUROSEMIDE. [Concomitant]
     Active Substance: FUROSEMIDE
     Dosage: 40 MG, OTHER (ONCE)
     Route: 042
     Dates: start: 20180729, end: 20180729
  108. FUROSEMIDE. [Concomitant]
     Active Substance: FUROSEMIDE
     Dosage: 40 MG, OTHER (ONCE)
     Route: 042
     Dates: start: 20180807, end: 20180807
  109. LORAZEPAM. [Concomitant]
     Active Substance: LORAZEPAM
     Dosage: 0.5 MG, EVERY 6 HOURS
     Route: 048
     Dates: start: 20180819, end: 20180820
  110. LORAZEPAM. [Concomitant]
     Active Substance: LORAZEPAM
     Dosage: 0.5 MG, TOTAL DOSE
     Route: 042
     Dates: start: 20181001, end: 20181001
  111. MAGNESIUM SULFATE. [Concomitant]
     Active Substance: MAGNESIUM SULFATE
     Dosage: 2 G, OTHER (ONCE)
     Route: 042
     Dates: start: 20180809, end: 20180809
  112. MAGNESIUM SULFATE. [Concomitant]
     Active Substance: MAGNESIUM SULFATE
     Dosage: 2 G, OTHER (EVERY 2 HOURS)
     Route: 042
     Dates: start: 20180816, end: 20180816
  113. MAGNESIUM [Concomitant]
     Active Substance: MAGNESIUM
     Indication: PRODUCT USED FOR UNKNOWN INDICATION
     Route: 048
     Dates: start: 20180728, end: 20180731
  114. MAGNESIUM [Concomitant]
     Active Substance: MAGNESIUM
     Route: 048
     Dates: start: 20180816, end: 20180816
  115. PALONOSETRON. [Concomitant]
     Active Substance: PALONOSETRON HYDROCHLORIDE
     Indication: PRODUCT USED FOR UNKNOWN INDICATION
     Dosage: 250 ?G, OTHER (ONCE)
     Route: 042
     Dates: start: 20180804, end: 20180804
  116. POTASSIUM CHLORIDE. [Concomitant]
     Active Substance: POTASSIUM CHLORIDE
     Dosage: 40 MEQ, OTHER (ONCE)
     Route: 042
     Dates: start: 20180809, end: 20180809
  117. POTASSIUM CHLORIDE. [Concomitant]
     Active Substance: POTASSIUM CHLORIDE
     Dosage: 30 MEQ, OTHER (ONCE)
     Route: 042
     Dates: start: 20180811, end: 20180811
  118. POTASSIUM CHLORIDE. [Concomitant]
     Active Substance: POTASSIUM CHLORIDE
     Dosage: 20 MEQ, OTHER (ONCE)
     Route: 042
     Dates: start: 20180812, end: 20180812
  119. SCOPOLAMINE                        /00008701/ [Concomitant]
     Active Substance: SCOPOLAMINE
     Indication: PRODUCT USED FOR UNKNOWN INDICATION
     Dosage: 1 PATCH, EVERY 3 DAYS
     Route: 062
     Dates: start: 20180804, end: 20180815
  120. TRAMADOL. [Concomitant]
     Active Substance: TRAMADOL
     Indication: PRODUCT USED FOR UNKNOWN INDICATION
     Route: 048
     Dates: start: 20180824, end: 20180826
  121. CYCLOSPORINE. [Concomitant]
     Active Substance: CYCLOSPORINE
     Route: 048
     Dates: start: 20181003, end: 20181003
  122. PIPERACILLIN/TAZOBACTAM [Concomitant]
     Active Substance: PIPERACILLIN SODIUM\TAZOBACTAM SODIUM
     Indication: PRODUCT USED FOR UNKNOWN INDICATION
     Route: 042
     Dates: start: 20181004, end: 20181004
  123. MEROPENEM. [Concomitant]
     Active Substance: MEROPENEM
     Route: 042
     Dates: start: 20181010, end: 20181010
  124. ERTAPENEM. [Concomitant]
     Active Substance: ERTAPENEM SODIUM
     Route: 042
     Dates: start: 20181018, end: 20181021
  125. CALCIUM GLUCONATE. [Concomitant]
     Active Substance: CALCIUM GLUCONATE
     Indication: PRODUCT USED FOR UNKNOWN INDICATION
     Route: 042
     Dates: start: 20181013, end: 20181013
  126. ISAVUCONAZOLE [Suspect]
     Active Substance: ISAVUCONAZOLE
     Dosage: 372 MG, OTHER (ONCE)
     Route: 048
     Dates: start: 20181013, end: 20181013
  127. ISAVUCONAZOLE [Suspect]
     Active Substance: ISAVUCONAZOLE
     Route: 042
     Dates: start: 20181028, end: 20181028
  128. ISAVUCONAZOLE [Suspect]
     Active Substance: ISAVUCONAZOLE
     Route: 042
  129. CYCLOSPORINE. [Concomitant]
     Active Substance: CYCLOSPORINE
     Route: 042
     Dates: start: 20180817, end: 20180821
  130. DIPHENHYDRAMINE. [Concomitant]
     Active Substance: DIPHENHYDRAMINE
     Dosage: 50 MG, EVERY 6 HOURS (AS NEEDED)
     Route: 042
     Dates: start: 20180821, end: 20180821
  131. ESTRADIOL TRANSDERMAL SYSTEM [Concomitant]
     Active Substance: ESTRADIOL
     Indication: PRODUCT USED FOR UNKNOWN INDICATION
     Dosage: 1 PATCH (0.05 MG/24 HOURS), TWICE WEEKLY
     Route: 062
     Dates: start: 20180824
  132. FENTANYL. [Concomitant]
     Active Substance: FENTANYL
     Indication: PRODUCT USED FOR UNKNOWN INDICATION
     Dosage: 1000 ?G, UNKNOWN FREQ. (CONTINUOS)
     Route: 042
     Dates: start: 20180728, end: 20180729
  133. GRANISETRON [Concomitant]
     Active Substance: GRANISETRON
     Dosage: 1 MG, EVERY 12 HOURS (AS NEEDED)
     Route: 042
     Dates: start: 20180810, end: 20180810
  134. HYDROXYPROPYL METHYLCELLULOSE [Concomitant]
     Active Substance: HYPROMELLOSES
     Dosage: 1 DROPS, OTHER (EVERY 4 HOURS BOTH EYES)
     Route: 065
     Dates: start: 20180805, end: 20180805
  135. LORAZEPAM. [Concomitant]
     Active Substance: LORAZEPAM
     Dosage: 1 MG, OTHER (ONCE)
     Route: 042
     Dates: start: 20180826, end: 20180827
  136. MAGNESIUM OXIDE. [Concomitant]
     Active Substance: MAGNESIUM OXIDE
     Indication: PRODUCT USED FOR UNKNOWN INDICATION
     Dosage: 800 MG, OTHER (ONCE)
     Route: 048
     Dates: start: 20180811, end: 20180811
  137. MAGNESIUM SULFATE. [Concomitant]
     Active Substance: MAGNESIUM SULFATE
     Dosage: 2 G, OTHER (EVERY 1 HOUR)
     Route: 042
     Dates: start: 20180805, end: 20180805
  138. MAGNESIUM SULFATE. [Concomitant]
     Active Substance: MAGNESIUM SULFATE
     Dosage: 1 G, OTHER (ONCE)
     Route: 042
     Dates: start: 20180808, end: 20180808
  139. MAGNESIUM [Concomitant]
     Active Substance: MAGNESIUM
     Route: 048
     Dates: start: 20180801, end: 20180801
  140. MAGNESIUM [Concomitant]
     Active Substance: MAGNESIUM
     Route: 048
     Dates: start: 20180816, end: 20180818
  141. MAGNESIUM [Concomitant]
     Active Substance: MAGNESIUM
     Route: 048
     Dates: start: 20180819, end: 20180825
  142. MYCOPHENOLATE MOFETIL. [Concomitant]
     Active Substance: MYCOPHENOLATE MOFETIL
     Indication: PRODUCT USED FOR UNKNOWN INDICATION
     Route: 048
     Dates: start: 20180814, end: 20180826
  143. MYCOPHENOLATE MOFETIL. [Concomitant]
     Active Substance: MYCOPHENOLATE MOFETIL
     Route: 042
     Dates: start: 20180827
  144. OXYCODONE [Concomitant]
     Active Substance: OXYCODONE
     Indication: PRODUCT USED FOR UNKNOWN INDICATION
     Dosage: 5 MG, OTHER (EVERY 4 HOURS AS NEEDED)
     Route: 048
     Dates: start: 20180811, end: 20180812
  145. POTASSIUM CHLORIDE. [Concomitant]
     Active Substance: POTASSIUM CHLORIDE
     Dosage: 20 MEQ, OTHER (EVERY 2 HOURS)
     Route: 048
     Dates: start: 20180730, end: 20180730
  146. AZITHROMYCIN ANHYDROUS. [Concomitant]
     Active Substance: AZITHROMYCIN ANHYDROUS
     Indication: PRODUCT USED FOR UNKNOWN INDICATION
     Route: 065
     Dates: start: 20180925, end: 20180925
  147. CYCLOSPORINE. [Concomitant]
     Active Substance: CYCLOSPORINE
     Indication: PRODUCT USED FOR UNKNOWN INDICATION
     Route: 048
     Dates: start: 20180927, end: 20180928
  148. LORAZEPAM. [Concomitant]
     Active Substance: LORAZEPAM
     Dosage: 0.5 MG, EVERY 6 HOURS
     Route: 048
     Dates: start: 20181004, end: 20181011
  149. NORMAL SALINE [Concomitant]
     Active Substance: SODIUM CHLORIDE
     Indication: PRODUCT USED FOR UNKNOWN INDICATION
     Route: 042
     Dates: start: 20180929, end: 20180929
  150. ONDANSETRON [Concomitant]
     Active Substance: ONDANSETRON
     Route: 048
     Dates: start: 20181004, end: 20181005
  151. ACYCLOVIR                          /00587301/ [Concomitant]
     Active Substance: ACYCLOVIR
     Indication: PRODUCT USED FOR UNKNOWN INDICATION
     Route: 048
     Dates: start: 20181004, end: 20181011
  152. OLANZAPINE. [Concomitant]
     Active Substance: OLANZAPINE
     Indication: PRODUCT USED FOR UNKNOWN INDICATION
     Route: 048
     Dates: start: 20181006, end: 20181010
  153. ISAVUCONAZOLE [Suspect]
     Active Substance: ISAVUCONAZOLE
     Route: 048
     Dates: start: 20180908, end: 20180921
  154. ISAVUCONAZOLE [Suspect]
     Active Substance: ISAVUCONAZOLE
     Route: 048
     Dates: start: 20181012, end: 20181013
  155. ISAVUCONAZOLE [Suspect]
     Active Substance: ISAVUCONAZOLE
     Indication: ANTIFUNGAL PROPHYLAXIS
     Route: 042
     Dates: start: 20181007, end: 20181008
  156. ISAVUCONAZOLE [Suspect]
     Active Substance: ISAVUCONAZOLE
     Route: 042
     Dates: start: 20181027, end: 20181027
  157. SIMETHICONE (DIMETHICONE) [Concomitant]
     Active Substance: DIMETHICONE
     Dosage: 15 ML, OTHER (EVERY 4 HOURS AS NEEDED)
     Route: 048
     Dates: start: 20180811, end: 20180811
  158. CYCLOSPORINE. [Concomitant]
     Active Substance: CYCLOSPORINE
     Route: 042
     Dates: start: 20180809, end: 20180813
  159. CYCLOSPORINE. [Concomitant]
     Active Substance: CYCLOSPORINE
     Route: 042
     Dates: start: 20180813, end: 20180817
  160. ESTRADIOL W/NORETHISTERONE [Concomitant]
     Active Substance: ESTRADIOL\NORETHINDRONE ACETATE
     Indication: PRODUCT USED FOR UNKNOWN INDICATION
     Dosage: 1 PATCH (0.05 MG/0.14 MG (NF)), EVERY 3 DAYS
     Route: 062
     Dates: start: 20180720, end: 20180729
  161. NORGESTREL [Concomitant]
     Active Substance: NORGESTREL
     Indication: PRODUCT USED FOR UNKNOWN INDICATION
     Route: 048
     Dates: start: 20180731, end: 20180806
  162. NORGESTREL [Concomitant]
     Active Substance: NORGESTREL
     Route: 048
     Dates: start: 20180806, end: 20180808
  163. NORGESTREL [Concomitant]
     Active Substance: NORGESTREL
     Route: 048
     Dates: start: 20180820, end: 20180822
  164. FOLIC ACID. [Concomitant]
     Active Substance: FOLIC ACID
     Indication: PRODUCT USED FOR UNKNOWN INDICATION
     Route: 042
     Dates: start: 20180803, end: 20180811
  165. LORAZEPAM. [Concomitant]
     Active Substance: LORAZEPAM
     Indication: PRODUCT USED FOR UNKNOWN INDICATION
     Dosage: 0.5 MG, EVERY 6 HOURS (AS NEEDED)
     Route: 042
     Dates: start: 20180728, end: 20180728
  166. LORAZEPAM. [Concomitant]
     Active Substance: LORAZEPAM
     Dosage: 0.5 MG, OTHER (ONCE)
     Route: 048
     Dates: start: 20180824, end: 20180826
  167. LORAZEPAM. [Concomitant]
     Active Substance: LORAZEPAM
     Dosage: 0.5 MG, TOTAL DOSE
     Route: 042
     Dates: start: 20180929, end: 20180929
  168. MAGNESIUM SULFATE. [Concomitant]
     Active Substance: MAGNESIUM SULFATE
     Dosage: 2 G, OTHER (ONCE)
     Route: 042
     Dates: start: 20180811, end: 20180811
  169. MAGNESIUM SULFATE. [Concomitant]
     Active Substance: MAGNESIUM SULFATE
     Dosage: 2 G, OTHER (ONCE)
     Route: 042
     Dates: start: 20180822, end: 20180822
  170. MAGNESIUM [Concomitant]
     Active Substance: MAGNESIUM
     Route: 048
     Dates: start: 20180802, end: 20180803
  171. MAGNESIUM [Concomitant]
     Active Substance: MAGNESIUM
     Route: 048
     Dates: start: 20180812, end: 20180815
  172. MEDROXYPROGESTERONE [Concomitant]
     Active Substance: MEDROXYPROGESTERONE
     Indication: PRODUCT USED FOR UNKNOWN INDICATION
     Route: 048
     Dates: start: 20180824
  173. MORPHINE SULFATE. [Concomitant]
     Active Substance: MORPHINE SULFATE
     Dosage: 100 MG, UNKNOWN FREQ. (CONTINIOUS)
     Route: 042
     Dates: start: 20180801, end: 20180802
  174. MORPHINE SULFATE. [Concomitant]
     Active Substance: MORPHINE SULFATE
     Dosage: 100 MG, UNKNOWN FREQ. (CONTINIOUS)
     Route: 042
     Dates: start: 20180802, end: 20180803
  175. ZOLPIDEM [Concomitant]
     Active Substance: ZOLPIDEM\ZOLPIDEM TARTRATE
     Indication: PRODUCT USED FOR UNKNOWN INDICATION
     Dosage: 5 MG, AT BEDTIME (NIGHTLY AS NEEDED)
     Route: 048
     Dates: start: 20180806, end: 20180806
  176. HYDROXYZINE [Concomitant]
     Active Substance: HYDROXYZINE HYDROCHLORIDE
     Indication: PRODUCT USED FOR UNKNOWN INDICATION
     Route: 048
     Dates: start: 20180927, end: 20180928
  177. MEROPENEM. [Concomitant]
     Active Substance: MEROPENEM
     Indication: PRODUCT USED FOR UNKNOWN INDICATION
     Route: 042
     Dates: start: 20181005, end: 20181007
  178. HYDROXYZINE [Concomitant]
     Active Substance: HYDROXYZINE HYDROCHLORIDE
     Indication: PRODUCT USED FOR UNKNOWN INDICATION
     Route: 042
     Dates: start: 20181006, end: 20181006
  179. ISAVUCONAZOLE [Suspect]
     Active Substance: ISAVUCONAZOLE
     Indication: ANTIFUNGAL PROPHYLAXIS
     Route: 042
     Dates: start: 20180727, end: 20180729
  180. ISAVUCONAZOLE [Suspect]
     Active Substance: ISAVUCONAZOLE
     Route: 048
     Dates: start: 20180928, end: 20181004
  181. MORPHINE SULFATE. [Concomitant]
     Active Substance: MORPHINE SULFATE
     Indication: PRODUCT USED FOR UNKNOWN INDICATION
     Dosage: 2 MG, OTHER (EVERY 3 HOURS AS NEEDED)
     Route: 042
     Dates: start: 20180731, end: 20180731
  182. CYCLOSPORINE. [Concomitant]
     Active Substance: CYCLOSPORINE
     Route: 042
     Dates: start: 20180805, end: 20180807
  183. CYCLOSPORINE. [Concomitant]
     Active Substance: CYCLOSPORINE
     Route: 042
     Dates: start: 20180821, end: 20180822
  184. DIPHENHYDRAMINE. [Concomitant]
     Active Substance: DIPHENHYDRAMINE
     Dosage: 50 MG, OTHER (ONCE)
     Route: 042
     Dates: start: 20180824, end: 20180824
  185. DIPHENHYDRAMINE. [Concomitant]
     Active Substance: DIPHENHYDRAMINE
     Route: 042
     Dates: start: 20180827
  186. ESTRADIOL W/NORETHISTERONE [Concomitant]
     Active Substance: ESTRADIOL\NORETHINDRONE ACETATE
     Dosage: 1 PATCH (0.05 MG/0.14 MG (NF)), TWICE WEEKLY
     Route: 062
     Dates: start: 20180808, end: 20180821
  187. HYDROXYPROPYL METHYLCELLULOSE [Concomitant]
     Active Substance: HYPROMELLOSES
     Indication: PRODUCT USED FOR UNKNOWN INDICATION
     Dosage: 1 DROPS, OTHER (EVERY 4 HOURS BOTH EYES)
     Route: 065
     Dates: start: 20180802, end: 20180803
  188. LEVALBUTEROL. [Concomitant]
     Active Substance: LEVALBUTEROL
     Dosage: 0.63 MG, OTHER (ONCE)
     Route: 065
     Dates: start: 20180822, end: 20180822
  189. LORAZEPAM. [Concomitant]
     Active Substance: LORAZEPAM
     Dosage: 0.5 MG, EVERY 6 HOURS
     Route: 048
     Dates: start: 20180822, end: 20180822
  190. LORAZEPAM. [Concomitant]
     Active Substance: LORAZEPAM
     Route: 042
     Dates: start: 20180925, end: 20180925
  191. MAGNESIUM SULFATE. [Concomitant]
     Active Substance: MAGNESIUM SULFATE
     Indication: PRODUCT USED FOR UNKNOWN INDICATION
     Dosage: 1 G, OTHER (ONCE)
     Route: 042
     Dates: start: 20180728, end: 20180728
  192. MAGNESIUM SULFATE. [Concomitant]
     Active Substance: MAGNESIUM SULFATE
     Dosage: 2 G, OTHER (EVERY 2 HOURS)
     Route: 042
     Dates: start: 20180820, end: 20180820
  193. MAGNESIUM SULFATE. [Concomitant]
     Active Substance: MAGNESIUM SULFATE
     Dosage: 2 G, EVERY 30 MINUTES
     Route: 042
     Dates: start: 20180929, end: 20180929
  194. MORPHINE SULFATE. [Concomitant]
     Active Substance: MORPHINE SULFATE
     Indication: PRODUCT USED FOR UNKNOWN INDICATION
     Dosage: 100 MG, UNKNOWN FREQ. (CONTINIOUS)
     Route: 042
     Dates: start: 20180730, end: 20180731
  195. MORPHINE SULFATE. [Concomitant]
     Active Substance: MORPHINE SULFATE
     Dosage: 100 MG, UNKNOWN FREQ. (CONTINIOUS)
     Route: 042
     Dates: start: 20180805, end: 20180806
  196. OLANZAPINE. [Concomitant]
     Active Substance: OLANZAPINE
     Indication: PRODUCT USED FOR UNKNOWN INDICATION
     Route: 048
     Dates: start: 20180729, end: 20180810
  197. VANCOMYCIN [Concomitant]
     Active Substance: VANCOMYCIN
     Indication: PRODUCT USED FOR UNKNOWN INDICATION
     Route: 048
     Dates: start: 20180925, end: 20180928
  198. PENICILLIN                         /00000901/ [Concomitant]
     Active Substance: PENICILLIN G
     Indication: PRODUCT USED FOR UNKNOWN INDICATION
     Route: 065
  199. PREDNISONE. [Concomitant]
     Active Substance: PREDNISONE
     Route: 048
     Dates: start: 20181020, end: 20181020
  200. MYCOPHENOLATE MOFETIL. [Concomitant]
     Active Substance: MYCOPHENOLATE MOFETIL
     Indication: PRODUCT USED FOR UNKNOWN INDICATION
     Route: 048
     Dates: start: 20180927, end: 20180928
  201. NORMAL SALINE [Concomitant]
     Active Substance: SODIUM CHLORIDE
     Route: 042
     Dates: start: 20181001, end: 20181001
  202. ONDANSETRON [Concomitant]
     Active Substance: ONDANSETRON
     Route: 048
     Dates: start: 20181007, end: 20181008
  203. BUDESONIDE. [Concomitant]
     Active Substance: BUDESONIDE
     Route: 048
     Dates: start: 20181004, end: 20181011
  204. ERTAPENEM. [Concomitant]
     Active Substance: ERTAPENEM SODIUM
     Route: 042
     Dates: start: 20181012, end: 20181012
  205. ISAVUCONAZOLE [Suspect]
     Active Substance: ISAVUCONAZOLE
     Route: 042
     Dates: start: 20181007, end: 20181007
  206. ISAVUCONAZOLE [Suspect]
     Active Substance: ISAVUCONAZOLE
     Route: 048
     Dates: start: 20181009, end: 20181010
  207. ISAVUCONAZOLE [Suspect]
     Active Substance: ISAVUCONAZOLE
     Route: 042
     Dates: start: 20181026, end: 20181026
  208. ALBUTEROL                          /00139501/ [Concomitant]
     Active Substance: ALBUTEROL
     Indication: PRODUCT USED FOR UNKNOWN INDICATION
     Dosage: 3 ML, OTHER (ONCE)
     Route: 065
     Dates: start: 20180808, end: 20180808
  209. CLOBETASOL [Concomitant]
     Active Substance: CLOBETASOL
     Indication: PRODUCT USED FOR UNKNOWN INDICATION
     Dosage: 1 APPLICATION, EVERY 12 HOURS
     Route: 061
     Dates: start: 20180819, end: 20180822
  210. CYCLOSPORINE. [Concomitant]
     Active Substance: CYCLOSPORINE
     Route: 042
     Dates: start: 20180801, end: 20180803
  211. CYCLOSPORINE. [Concomitant]
     Active Substance: CYCLOSPORINE
     Route: 042
     Dates: start: 20180824, end: 20180826
  212. FUROSEMIDE. [Concomitant]
     Active Substance: FUROSEMIDE
     Dosage: 20 MG, OTHER (ONCE)
     Route: 042
     Dates: start: 20180809, end: 20180809
  213. HYDROCORTISONE. [Concomitant]
     Active Substance: HYDROCORTISONE
     Indication: PRODUCT USED FOR UNKNOWN INDICATION
     Dosage: 50 MG, EVERY 6 HOURS (AS NEEDED)
     Route: 042
     Dates: start: 20180802, end: 20180822
  214. LIDOCAINE VISCOUS [Concomitant]
     Active Substance: LIDOCAINE HYDROCHLORIDE
     Indication: PRODUCT USED FOR UNKNOWN INDICATION
     Dosage: 5 ML, OTHER (EVERY 4 HOURS AS NEEDED) VIA SWISH AND SPIT
     Route: 065
     Dates: start: 20180804, end: 20180804
  215. LORAZEPAM. [Concomitant]
     Active Substance: LORAZEPAM
     Dosage: 0.5 MG, OTHER (ONCE)
     Route: 042
     Dates: start: 20180826, end: 20180826
  216. LORAZEPAM. [Concomitant]
     Active Substance: LORAZEPAM
     Dosage: 0.5 MG, EVERY 6 HOURS
     Route: 042
     Dates: start: 20180827
  217. LORAZEPAM. [Concomitant]
     Active Substance: LORAZEPAM
     Dosage: 0.5 MG, TOTAL DOSE
     Route: 042
     Dates: start: 20181013, end: 20181013
  218. MAGNESIUM SULFATE. [Concomitant]
     Active Substance: MAGNESIUM SULFATE
     Dosage: 2 G, OTHER (ONCE)
     Route: 042
     Dates: start: 20180927, end: 20180927
  219. MAGNESIUM [Concomitant]
     Active Substance: MAGNESIUM
     Route: 048
     Dates: start: 20180807, end: 20180810
  220. MORPHINE SULFATE. [Concomitant]
     Active Substance: MORPHINE SULFATE
     Dosage: 100 MG, UNKNOWN FREQ. (CONTINIOUS)
     Route: 042
     Dates: start: 20180804, end: 20180805
  221. MYCOPHENOLATE MOFETIL. [Concomitant]
     Active Substance: MYCOPHENOLATE MOFETIL
     Dosage: 1500 MG, THRICE DAILY
     Route: 065
     Dates: start: 20180927, end: 20180927
  222. PANTOPRAZOLE [Concomitant]
     Active Substance: PANTOPRAZOLE
     Route: 042
     Dates: start: 20180827
  223. POTASSIUM CHLORIDE. [Concomitant]
     Active Substance: POTASSIUM CHLORIDE
     Dosage: 20 MEQ, OTHER (EVERY 1 HOURS)
     Route: 042
     Dates: start: 20180801, end: 20180801
  224. POTASSIUM CHLORIDE. [Concomitant]
     Active Substance: POTASSIUM CHLORIDE
     Dosage: 20 MEQ, OTHER (EVERY 1 HOURS)
     Route: 042
     Dates: start: 20180804, end: 20180804
  225. POTASSIUM CHLORIDE. [Concomitant]
     Active Substance: POTASSIUM CHLORIDE
     Route: 042
     Dates: start: 20180814, end: 20180820
  226. TRAMADOL HCL [Concomitant]
     Active Substance: TRAMADOL HYDROCHLORIDE
     Route: 048
     Dates: start: 20180811, end: 20180811
  227. PREDNISONE. [Concomitant]
     Active Substance: PREDNISONE
     Route: 048
     Dates: start: 20181010, end: 20181011

REACTIONS (13)
  - Nausea [Unknown]
  - Nausea [Recovering/Resolving]
  - Pneumonia klebsiella [Unknown]
  - Diarrhoea [Recovering/Resolving]
  - Diarrhoea [Unknown]
  - Bacteraemia [Unknown]
  - Vomiting [Unknown]
  - Dysphagia [Unknown]
  - Sepsis [Unknown]
  - Vomiting [Unknown]
  - Clostridium difficile infection [Unknown]
  - Colitis [Unknown]
  - Hypophagia [Recovered/Resolved]

NARRATIVE: CASE EVENT DATE: 20180826
